FAERS Safety Report 7420512-6 (Version None)
Quarter: 2011Q2

REPORT INFORMATION
  Report Type: 
  Country: None (occurrence: None)
  Receive Date: 20110418
  Receipt Date: 20110413
  Transmission Date: 20111010
  Serious: No
  Sender: FDA-Public Use
  Company Number: US-PFIZER INC-2011082569

PATIENT
  Sex: Male
  Weight: 63.492 kg

DRUGS (5)
  1. PREDNISONE [Suspect]
     Indication: INFLAMMATION
     Dosage: UNK
     Dates: start: 20100101
  2. DILTIAZEM HCL [Suspect]
     Indication: ANTICOAGULANT THERAPY
     Dosage: UNK
     Dates: start: 20101201
  3. REVATIO [Suspect]
     Indication: PULMONARY ARTERIAL HYPERTENSION
     Dosage: UNK
     Dates: start: 20110101
  4. RANITIDINE [Concomitant]
     Indication: DYSPEPSIA
     Dosage: 150 MG, AS NEEDED
     Route: 048
  5. VITAMINS [Concomitant]
     Dosage: UNK

REACTIONS (2)
  - DRUG INEFFECTIVE [None]
  - FATIGUE [None]
